FAERS Safety Report 7053390-8 (Version None)
Quarter: 2010Q4

REPORT INFORMATION
  Report Type: 
  Country: None (occurrence: None)
  Receive Date: 20101014
  Receipt Date: 20101007
  Transmission Date: 20110411
  Serious: Yes (Other)
  Sender: FDA-Public Use
  Company Number: 2010SP053484

PATIENT
  Age: 45 Year
  Sex: Female
  Weight: 59 kg

DRUGS (1)
  1. IMPLANON [Suspect]
     Indication: CONTRACEPTION
     Dosage: 68 MG; ; SBDE
     Route: 059
     Dates: start: 20100908

REACTIONS (5)
  - FATIGUE [None]
  - HEADACHE [None]
  - SENSORY DISTURBANCE [None]
  - TACHYCARDIA [None]
  - WEIGHT INCREASED [None]
